FAERS Safety Report 23230684 (Version 1)
Quarter: 2023Q4

REPORT INFORMATION
  Report Type: Other
  Country: DE (occurrence: None)
  Receive Date: 20231127
  Receipt Date: 20231127
  Transmission Date: 20240109
  Serious: No
  Sender: FDA-Public Use
  Company Number: DE-ROCHE-3347692

PATIENT
  Age: 55 Year
  Sex: Female

DRUGS (4)
  1. OCREVUS [Suspect]
     Active Substance: OCRELIZUMAB
     Indication: Relapsing-remitting multiple sclerosis
     Dosage: 191 DAYS, 600MG
     Route: 042
     Dates: start: 20230504
  2. ROPINIROLE [Concomitant]
     Active Substance: ROPINIROLE
     Dosage: 2MG RETARD AT NOON AND 1MG NON-RETARD AT NIGHT
  3. GABAPENTIN [Concomitant]
     Active Substance: GABAPENTIN
  4. AMITRIPTYLINE [Concomitant]
     Active Substance: AMITRIPTYLINE

REACTIONS (7)
  - Restless legs syndrome [Not Recovered/Not Resolved]
  - Conjunctivitis [Recovered/Resolved]
  - Cough [Not Recovered/Not Resolved]
  - Urticaria [Not Recovered/Not Resolved]
  - Oral herpes [Not Recovered/Not Resolved]
  - Gait disturbance [Not Recovered/Not Resolved]
  - Fine motor skill dysfunction [Not Recovered/Not Resolved]

NARRATIVE: CASE EVENT DATE: 20230504
